FAERS Safety Report 12133735 (Version 3)
Quarter: 2016Q4

REPORT INFORMATION
  Report Type: Report from Study
  Country: IL (occurrence: IL)
  Receive Date: 20160301
  Receipt Date: 20161107
  Transmission Date: 20170206
  Serious: Yes (Hospitalization)
  Sender: FDA-Public Use
  Company Number: IL-ROCHE-1714540

PATIENT
  Age: 74 Year
  Sex: Female

DRUGS (34)
  1. PARACETAMOL [Concomitant]
     Active Substance: ACETAMINOPHEN
     Indication: PROPHYLAXIS
     Route: 065
     Dates: start: 20130116
  2. ROKACET [Concomitant]
     Route: 048
     Dates: start: 20161025
  3. ZINNAT [Concomitant]
     Active Substance: CEFUROXIME AXETIL
     Route: 065
     Dates: start: 20160509, end: 20160516
  4. NORVASC [Concomitant]
     Active Substance: AMLODIPINE BESYLATE
     Route: 065
     Dates: start: 200201, end: 20150110
  5. ALLERGYX [Concomitant]
     Route: 065
     Dates: start: 20130116
  6. THREOLONE [Concomitant]
     Route: 065
     Dates: start: 20130204, end: 20130207
  7. ROKACET [Concomitant]
     Route: 048
     Dates: start: 20130121, end: 20130207
  8. ZINNAT [Concomitant]
     Active Substance: CEFUROXIME AXETIL
     Route: 065
     Dates: start: 20140629, end: 20140706
  9. ELTROXIN [Concomitant]
     Active Substance: LEVOTHYROXINE
     Route: 065
     Dates: start: 199801
  10. ROKACET [Concomitant]
     Route: 048
     Dates: start: 20130314
  11. PERTUZUMAB [Suspect]
     Active Substance: PERTUZUMAB
     Dosage: MAINTANANCE DOSE?DATE OF LAST DOSE PRIOR TO SAE-27/JAN/2016.
     Route: 042
  12. TRAMADEX [Concomitant]
     Active Substance: TRAMADOL
     Route: 065
     Dates: start: 20130501, end: 20130625
  13. GASTRO (ISRAEL) [Concomitant]
     Indication: PROPHYLAXIS
     Route: 065
     Dates: start: 20130116
  14. ROKACET [Concomitant]
     Route: 065
     Dates: start: 20130207, end: 20130303
  15. LIPITOR [Concomitant]
     Active Substance: ATORVASTATIN CALCIUM
     Route: 065
     Dates: start: 20130218
  16. LORATADINE. [Concomitant]
     Active Substance: LORATADINE
     Route: 048
     Dates: start: 20140629, end: 20140706
  17. NORVASC [Concomitant]
     Active Substance: AMLODIPINE BESYLATE
     Route: 065
     Dates: start: 20150111
  18. LOSARTAN POTASSIUM AND HYDROCHLOROTHIAZIDE [Concomitant]
     Active Substance: HYDROCHLOROTHIAZIDE\LOSARTAN POTASSIUM
     Route: 048
     Dates: start: 200201, end: 20150110
  19. BRINZOLAMIDE [Concomitant]
     Active Substance: BRINZOLAMIDE
     Dosage: AS NEEDED.
     Route: 065
     Dates: start: 20130428
  20. BRONCHOLATE SYRUP (ISRAEL) [Concomitant]
     Route: 065
     Dates: start: 20140629, end: 20140706
  21. CEFORAL (ISRAEL) [Concomitant]
     Route: 065
     Dates: start: 20160219, end: 20160224
  22. PACLITAXEL. [Suspect]
     Active Substance: PACLITAXEL
     Indication: HER-2 POSITIVE BREAST CANCER
     Dosage: DATE OF LAST DOSE PRIOR TO SAE-17/JUN/2013
     Route: 042
     Dates: start: 20130116, end: 20130617
  23. DEXACORT (ISRAEL) [Concomitant]
     Indication: PROPHYLAXIS
     Route: 065
     Dates: start: 20130116
  24. HYDROCORT (ISRAEL) [Concomitant]
     Route: 065
     Dates: start: 20130116, end: 20130116
  25. ROKACET [Concomitant]
     Route: 048
     Dates: start: 20121210, end: 20130107
  26. METAMIZOLE [Concomitant]
     Active Substance: METAMIZOLE
     Route: 065
     Dates: start: 20130403
  27. OCSAAR PLUS [Concomitant]
     Route: 048
     Dates: start: 20150111
  28. AGISTEN [Concomitant]
     Route: 065
     Dates: start: 20130710
  29. PERTUZUMAB [Suspect]
     Active Substance: PERTUZUMAB
     Indication: HER-2 POSITIVE BREAST CANCER
     Dosage: LOADING DOSE
     Route: 042
     Dates: start: 20130116, end: 20130116
  30. TRASTUZUMAB [Suspect]
     Active Substance: TRASTUZUMAB
     Indication: HER-2 POSITIVE BREAST CANCER
     Dosage: LOADING DOSE
     Route: 042
     Dates: start: 20130116, end: 20130116
  31. TRASTUZUMAB [Suspect]
     Active Substance: TRASTUZUMAB
     Dosage: MAINTENANCE DOSE?DATE OF LAST DOSE PRIOR TO SAE-27/JAN/2016.
     Route: 042
  32. ALLERGYX [Concomitant]
     Route: 065
     Dates: start: 20140629, end: 20140706
  33. THREOLONE [Concomitant]
     Route: 065
     Dates: start: 20130313
  34. OPTALGIN [Concomitant]
     Active Substance: METAMIZOLE
     Route: 065
     Dates: start: 20161022

REACTIONS (1)
  - Sinus node dysfunction [Recovered/Resolved]

NARRATIVE: CASE EVENT DATE: 20160217
